FAERS Safety Report 10081134 (Version 2)
Quarter: 2014Q2

REPORT INFORMATION
  Report Type: Spontaneous
  Country: JP (occurrence: JP)
  Receive Date: 20140416
  Receipt Date: 20140422
  Transmission Date: 20141212
  Serious: Yes (Other)
  Sender: FDA-Public Use
  Company Number: JP-PFIZER INC-2014101142

PATIENT
  Age: 60 Year
  Sex: Female

DRUGS (1)
  1. REVATIO [Suspect]
     Dosage: UNK
     Route: 048
     Dates: start: 201402

REACTIONS (1)
  - Cardiac failure [Recovering/Resolving]
